FAERS Safety Report 13106611 (Version 2)
Quarter: 2017Q1

REPORT INFORMATION
  Report Type: Report from Study
  Country: US (occurrence: US)
  Receive Date: 20170111
  Receipt Date: 20170209
  Transmission Date: 20170428
  Serious: Yes (Death, Other)
  Sender: FDA-Public Use
  Company Number: US-BAYER-2017-004485

PATIENT
  Age: 72 Year
  Sex: Female

DRUGS (1)
  1. NEXAVAR [Suspect]
     Active Substance: SORAFENIB
     Indication: MALIGNANT NEOPLASM OF UNKNOWN PRIMARY SITE
     Dosage: 400 MG, BID
     Route: 048
     Dates: start: 20161208

REACTIONS (4)
  - Death [Fatal]
  - Hepatic atrophy [None]
  - Glossodynia [None]
  - Therapeutic response unexpected [None]

NARRATIVE: CASE EVENT DATE: 20170126
